FAERS Safety Report 6832205-4 (Version None)
Quarter: 2010Q3

REPORT INFORMATION
  Report Type: 
  Country: None (occurrence: None)
  Receive Date: 20100712
  Receipt Date: 20100707
  Transmission Date: 20110219
  Serious: Yes (Other)
  Sender: FDA-Public Use
  Company Number: US-GENZYME-THYM-1001613

PATIENT

DRUGS (1)
  1. THYMOGLOBULIN [Suspect]
     Indication: PANCREAS ISLET CELL TRANSPLANT

REACTIONS (2)
  - FEBRILE NEUTROPENIA [None]
  - VOMITING [None]
